FAERS Safety Report 7914108-7 (Version None)
Quarter: 2011Q4

REPORT INFORMATION
  Report Type: 
  Country: None (occurrence: None)
  Receive Date: 20111114
  Receipt Date: 20111114
  Transmission Date: 20120403
  Serious: Yes (Other)
  Sender: FDA-Public Use
  Company Number: None

PATIENT
  Sex: Male
  Weight: 86.1834 kg

DRUGS (1)
  1. FLUOXETINE [Suspect]
     Indication: DEPRESSION
     Dosage: 20 MG TID PO
     Route: 048
     Dates: start: 20110615, end: 20110915

REACTIONS (3)
  - PRODUCT SUBSTITUTION ISSUE [None]
  - MYALGIA [None]
  - DRUG INEFFECTIVE [None]
